FAERS Safety Report 11432729 (Version 2)
Quarter: 2015Q3

REPORT INFORMATION
  Report Type: Report from Study
  Country: CA (occurrence: CA)
  Receive Date: 20150828
  Receipt Date: 20150831
  Transmission Date: 20151125
  Serious: Yes (Life-Threatening, Hospitalization, Other)
  Sender: FDA-Public Use
  Company Number: CA-ABBVIE-15K-028-1421218-00

PATIENT
  Age: 59 Year
  Sex: Female
  Weight: 122.58 kg

DRUGS (4)
  1. SIMVASTATIN. [Concomitant]
     Active Substance: SIMVASTATIN
     Indication: DYSLIPIDAEMIA
  2. HUMIRA [Suspect]
     Active Substance: ADALIMUMAB
     Indication: PSORIATIC ARTHROPATHY
     Route: 058
     Dates: start: 20070221
  3. FLEXACIL [Concomitant]
     Indication: PRODUCT USED FOR UNKNOWN INDICATION
  4. METHOTREXATE [Concomitant]
     Active Substance: METHOTREXATE
     Indication: PSORIATIC ARTHROPATHY
     Route: 048

REACTIONS (9)
  - Speech disorder [Unknown]
  - Paraesthesia oral [Unknown]
  - Headache [Recovered/Resolved]
  - Paraesthesia [Recovered/Resolved]
  - Somnolence [Unknown]
  - Extrasystoles [Unknown]
  - Ischaemic stroke [Recovered/Resolved]
  - Muscular weakness [Not Recovered/Not Resolved]
  - Hypoaesthesia [Unknown]

NARRATIVE: CASE EVENT DATE: 2015
